FAERS Safety Report 4691907-9 (Version None)
Quarter: 2005Q2

REPORT INFORMATION
  Report Type: 
  Country: None (occurrence: None)
  Receive Date: 20050614
  Receipt Date: 20050527
  Transmission Date: 20051028
  Serious: Yes (Hospitalization)
  Sender: FDA-Public Use
  Company Number: ACO_0163_2005

PATIENT
  Age: 48 Year
  Sex: Female

DRUGS (4)
  1. TIZANIDINE HCL [Suspect]
     Dosage: DF   PO
     Route: 048
  2. PRIALT [Suspect]
     Indication: BACK PAIN
     Dosage: DF  IT
     Route: 038
     Dates: start: 20050429
  3. NEURONTIN [Concomitant]
  4. RESTORIL [Concomitant]

REACTIONS (28)
  - ALANINE AMINOTRANSFERASE INCREASED [None]
  - ANAEMIA [None]
  - ANXIETY [None]
  - ASPARTATE AMINOTRANSFERASE INCREASED [None]
  - BAND NEUTROPHIL PERCENTAGE DECREASED [None]
  - BLOOD ALKALINE PHOSPHATASE INCREASED [None]
  - BLOOD CALCIUM DECREASED [None]
  - BLOOD CREATINE PHOSPHOKINASE INCREASED [None]
  - BLOOD CREATINE PHOSPHOKINASE MB INCREASED [None]
  - BLOOD GLUCOSE INCREASED [None]
  - BLOOD IRON DECREASED [None]
  - BLOOD LACTATE DEHYDROGENASE INCREASED [None]
  - DRUG SCREEN POSITIVE [None]
  - DYSPNOEA [None]
  - HAEMATOCRIT DECREASED [None]
  - HAEMOGLOBIN DECREASED [None]
  - HAPTOGLOBIN INCREASED [None]
  - HEADACHE [None]
  - LABORATORY TEST ABNORMAL [None]
  - LYMPHOCYTE PERCENTAGE DECREASED [None]
  - MEAN CELL HAEMOGLOBIN CONCENTRATION DECREASED [None]
  - MEAN CELL HAEMOGLOBIN DECREASED [None]
  - MEAN CELL VOLUME INCREASED [None]
  - NEUTROPHIL COUNT ABNORMAL [None]
  - NEUTROPHIL PERCENTAGE INCREASED [None]
  - PULMONARY OEDEMA [None]
  - RED CELL DISTRIBUTION WIDTH INCREASED [None]
  - WHITE BLOOD CELL COUNT INCREASED [None]
